FAERS Safety Report 5386147-4 (Version None)
Quarter: 2007Q3

REPORT INFORMATION
  Report Type: 
  Country: None (occurrence: None)
  Receive Date: 20070711
  Receipt Date: 20070711
  Transmission Date: 20080115
  Serious: Yes (Life-Threatening)
  Sender: FDA-Public Use
  Company Number: None

PATIENT

DRUGS (1)
  1. AMITIZA [Suspect]
     Dosage: 24MCG BID PO
     Route: 048
     Dates: start: 20070613, end: 20070623

REACTIONS (5)
  - ATRIAL FIBRILLATION [None]
  - POST PROCEDURAL COMPLICATION [None]
  - TORSADE DE POINTES [None]
  - VENTRICULAR EXTRASYSTOLES [None]
  - VENTRICULAR FIBRILLATION [None]
